FAERS Safety Report 8614444 (Version 3)
Quarter: 2013Q3

REPORT INFORMATION
  Report Type: Spontaneous
  Country: US (occurrence: US)
  Receive Date: 20120614
  Receipt Date: 20130925
  Transmission Date: 20140515
  Serious: Yes (Hospitalization, Disabling, Other)
  Sender: FDA-Public Use
  Company Number: US-ASTRAZENECA-2012SE35307

PATIENT
  Age: 45 Year
  Sex: Male
  Weight: 77.1 kg

DRUGS (21)
  1. NEXIUM [Suspect]
     Indication: GASTROOESOPHAGEAL REFLUX DISEASE
     Route: 048
  2. NEXIUM [Suspect]
     Indication: GASTROOESOPHAGEAL REFLUX DISEASE
     Route: 048
     Dates: start: 20030405
  3. NEXIUM [Suspect]
     Indication: GASTROOESOPHAGEAL REFLUX DISEASE
     Route: 048
     Dates: start: 20120723
  4. NEXIUM [Suspect]
     Indication: GASTROOESOPHAGEAL REFLUX DISEASE
     Route: 048
     Dates: start: 20110415
  5. TAGAMENT [Concomitant]
     Dates: start: 1980
  6. MILK OF MAGNESIUM [Concomitant]
     Dates: start: 1985
  7. ZYPREXA [Concomitant]
  8. VITAMIN D [Concomitant]
  9. VITAMIN C [Concomitant]
  10. ZYRTEC [Concomitant]
     Indication: SINUS DISORDER
  11. DIGOXIN [Concomitant]
  12. DIGOXIN [Concomitant]
     Route: 048
  13. KLONOPIN [Concomitant]
     Dates: start: 20110502
  14. FLOXIL [Concomitant]
     Indication: MUSCLE RELAXANT THERAPY
  15. OMEPRAZOLE [Concomitant]
     Route: 048
     Dates: start: 20130116
  16. SINGULAIR [Concomitant]
     Dates: start: 20110415
  17. PAROXETINE HCL [Concomitant]
     Dates: start: 20110412
  18. CYCLOBENZAPRINE [Concomitant]
     Dates: start: 20110419
  19. AZITHROMYCIN [Concomitant]
     Dates: start: 20110118
  20. TRAMADOL [Concomitant]
     Dates: start: 20110204
  21. BENADRYL [Concomitant]
     Dates: start: 20030405

REACTIONS (22)
  - Rib fracture [Unknown]
  - Splenic rupture [Unknown]
  - Polyp [Unknown]
  - Pneumonia [Unknown]
  - Pneumothorax [Unknown]
  - Tachycardia paroxysmal [Unknown]
  - Chest pain [Unknown]
  - Intestinal obstruction [Unknown]
  - Depression [Unknown]
  - Bone density decreased [Unknown]
  - Osteoporosis [Unknown]
  - Fracture [Unknown]
  - Upper limb fracture [Unknown]
  - Angina pectoris [Unknown]
  - Type 2 diabetes mellitus [Unknown]
  - Haemochromatosis [Unknown]
  - Liver disorder [Unknown]
  - Vitamin D deficiency [Unknown]
  - Chronic obstructive pulmonary disease [Unknown]
  - Road traffic accident [Unknown]
  - Soft tissue injury [Unknown]
  - Carpal tunnel syndrome [Unknown]
